FAERS Safety Report 6336505-6 (Version None)
Quarter: 2009Q3

REPORT INFORMATION
  Report Type: 
  Country: None (occurrence: None)
  Receive Date: 20090901
  Receipt Date: 20090821
  Transmission Date: 20100115
  Serious: Yes (Life-Threatening)
  Sender: FDA-Public Use
  Company Number: FR-AVENTIS-200913123FR

PATIENT
  Age: 74 Year
  Sex: Male

DRUGS (10)
  1. LOVENOX [Suspect]
     Indication: ATRIAL FIBRILLATION
     Route: 058
     Dates: start: 20090627, end: 20090707
  2. CLAFORAN [Suspect]
     Indication: CHRONIC OBSTRUCTIVE PULMONARY DISEASE
     Route: 042
     Dates: start: 20090627, end: 20090707
  3. PLAVIX [Suspect]
     Route: 048
     Dates: end: 20090707
  4. KARDEGIC                           /00002703/ [Suspect]
     Route: 048
     Dates: end: 20090707
  5. ERYTHROMYCIN [Suspect]
     Route: 042
     Dates: start: 20090627, end: 20090707
  6. TRIATEC                            /00885601/ [Concomitant]
     Route: 048
     Dates: end: 20090627
  7. LASILIX FAIBLE [Concomitant]
     Route: 048
     Dates: end: 20090627
  8. INEXIUM [Concomitant]
     Route: 048
     Dates: end: 20090607
  9. ZOCOR [Concomitant]
     Route: 048
     Dates: end: 20090627
  10. JOSIR [Concomitant]
     Route: 048

REACTIONS (2)
  - ABDOMINAL WALL HAEMATOMA [None]
  - HAEMORRHAGIC ANAEMIA [None]
